FAERS Safety Report 21871599 (Version 1)
Quarter: 2023Q1

REPORT INFORMATION
  Report Type: Spontaneous
  Country: US (occurrence: None)
  Receive Date: 20230113
  Receipt Date: 20230113
  Transmission Date: 20230418
  Serious: Yes (Other)
  Sender: FDA-Public Use
  Company Number: None

PATIENT
  Age: 56 Year
  Sex: Female

DRUGS (2)
  1. HYDROCHLOROTHIAZIDE\OLMESARTAN MEDOXOMIL [Suspect]
     Active Substance: HYDROCHLOROTHIAZIDE\OLMESARTAN MEDOXOMIL
     Indication: Hypertension
     Dosage: OTHER STRENGTH : I DON^T KNOW.;?OTHER QUANTITY : 1 TABLET(S);?FREQUENCY : DAILY;?
     Route: 048
     Dates: start: 20230102
  2. OLMESARTAN [Concomitant]
     Active Substance: OLMESARTAN

REACTIONS (8)
  - Product substitution issue [None]
  - Drug ineffective [None]
  - Ear disorder [None]
  - Diarrhoea [None]
  - Dyspepsia [None]
  - Abdominal discomfort [None]
  - Blood pressure increased [None]
  - Suspected product quality issue [None]

NARRATIVE: CASE EVENT DATE: 20230108
